FAERS Safety Report 10252105 (Version 1)
Quarter: 2014Q2

REPORT INFORMATION
  Report Type: Spontaneous
  Country: PT (occurrence: PT)
  Receive Date: 20140623
  Receipt Date: 20140623
  Transmission Date: 20141212
  Serious: Yes (Hospitalization)
  Sender: FDA-Public Use
  Company Number: PT-JNJFOC-20140608864

PATIENT
  Sex: Male
  Weight: 27 kg

DRUGS (8)
  1. INVEGA [Suspect]
     Indication: FOETAL ALCOHOL SYNDROME
     Route: 048
  2. INVEGA [Suspect]
     Indication: ATTENTION DEFICIT/HYPERACTIVITY DISORDER
     Route: 048
  3. RITALINE [Suspect]
     Indication: FOETAL ALCOHOL SYNDROME
     Route: 065
  4. RITALINE [Suspect]
     Indication: ATTENTION DEFICIT/HYPERACTIVITY DISORDER
     Route: 065
  5. RUBIFEN [Suspect]
     Indication: FOETAL ALCOHOL SYNDROME
     Route: 065
  6. RUBIFEN [Suspect]
     Indication: ATTENTION DEFICIT/HYPERACTIVITY DISORDER
     Route: 065
  7. RISPERIDONE [Suspect]
     Indication: FOETAL ALCOHOL SYNDROME
     Route: 065
  8. RISPERIDONE [Suspect]
     Indication: ATTENTION DEFICIT/HYPERACTIVITY DISORDER
     Route: 065

REACTIONS (6)
  - Somnolence [Unknown]
  - Dystonia [Unknown]
  - Blunted affect [Unknown]
  - Dystonia [Unknown]
  - Protrusion tongue [Unknown]
  - Off label use [Unknown]
